FAERS Safety Report 13756351 (Version 1)
Quarter: 2017Q3

REPORT INFORMATION
  Report Type: Spontaneous
  Country: FR (occurrence: FR)
  Receive Date: 20170714
  Receipt Date: 20170714
  Transmission Date: 20171127
  Serious: Yes (Hospitalization)
  Sender: FDA-Public Use
  Company Number: FR-PFIZER INC-2017301721

PATIENT
  Age: 42 Year
  Sex: Female

DRUGS (5)
  1. MEDROL [Suspect]
     Active Substance: METHYLPREDNISOLONE
     Dosage: UNK UNK, CYCLIC (FROM DAY 13 OF MENSTRUAL CYCLE UNTIL PERIODS)
     Route: 048
     Dates: start: 2012, end: 20170512
  2. CLOMID [Suspect]
     Active Substance: CLOMIPHENE CITRATE
     Dosage: UNK, CYCLIC (FROM DAY 4 TO DAY 7 OF MENSTRUAL CYCLE)
     Route: 048
     Dates: start: 2012, end: 20170512
  3. UTROGESTAN [Suspect]
     Active Substance: PROGESTERONE
     Dosage: UNK, CYCLIC (FROM DAY 13 UNTIL PERIODS)
     Dates: start: 2012, end: 20170517
  4. PROGYNOVA /00045402/ [Suspect]
     Active Substance: ESTRADIOL VALERATE
     Dosage: UNK UNK, CYCLIC (FROM DAY 7 TO DAY 12 OF MENSTRUAL CYCLE)
     Route: 048
     Dates: start: 2012, end: 20170512
  5. LEVOTHYROXINE. [Concomitant]
     Active Substance: LEVOTHYROXINE

REACTIONS (3)
  - Vertigo [Recovered/Resolved with Sequelae]
  - Paresis [Recovered/Resolved]
  - Fall [Unknown]

NARRATIVE: CASE EVENT DATE: 20170512
